FAERS Safety Report 13355738 (Version 1)
Quarter: 2017Q1

REPORT INFORMATION
  Report Type: Other
  Country: FR (occurrence: FR)
  Receive Date: 20170321
  Receipt Date: 20170321
  Transmission Date: 20170429
  Serious: Yes (Death, Congenital Anomaly, Other)
  Sender: FDA-Public Use
  Company Number: FR-ASTELLAS-2017US010852

PATIENT
  Sex: Male

DRUGS (2)
  1. CERTICAN [Suspect]
     Active Substance: EVEROLIMUS
     Indication: PRODUCT USED FOR UNKNOWN INDICATION
     Dosage: UNK, UNKNOWN FREQ.
     Route: 065
  2. PROGRAF [Suspect]
     Active Substance: TACROLIMUS\TACROLIMUS ANHYDROUS
     Indication: PRODUCT USED FOR UNKNOWN INDICATION
     Dosage: UNK UNK, UNKNOWN FREQ.
     Route: 050

REACTIONS (11)
  - Microtia [Unknown]
  - Brain malformation [Unknown]
  - Brain malformation [Fatal]
  - Congenital multiplex arthrogryposis [Fatal]
  - Congenital limb hyperextension [Unknown]
  - Microcephaly [Fatal]
  - Exophthalmos [Unknown]
  - Nervous system disorder [Unknown]
  - Exposure via father [Unknown]
  - Ventricular septal defect [Fatal]
  - Foetal growth abnormality [Unknown]

NARRATIVE: CASE EVENT DATE: 20160913
